FAERS Safety Report 18256314 (Version 1)
Quarter: 2020Q3

REPORT INFORMATION
  Report Type: Spontaneous
  Country: US (occurrence: US)
  Receive Date: 20200911
  Receipt Date: 20200911
  Transmission Date: 20201103
  Serious: No
  Sender: FDA-Public Use
  Company Number: US-BRISTOL-MYERS SQUIBB COMPANY-BMS-2020-074243

PATIENT
  Sex: Female

DRUGS (1)
  1. ORENCIA [Suspect]
     Active Substance: ABATACEPT
     Indication: DEMYELINATING POLYNEUROPATHY
     Dosage: 125 MILLIGRAM, QWK
     Route: 058
     Dates: start: 20190412

REACTIONS (2)
  - Drug hypersensitivity [Unknown]
  - Intentional product use issue [Unknown]
